FAERS Safety Report 20249838 (Version 2)
Quarter: 2021Q4

REPORT INFORMATION
  Report Type: Spontaneous
  Country: AU (occurrence: AU)
  Receive Date: 20211229
  Receipt Date: 20211231
  Transmission Date: 20220304
  Serious: No
  Sender: FDA-Public Use
  Company Number: AU-NALPROPION PHARMACEUTICALS INC.-2021-014708

PATIENT

DRUGS (1)
  1. CONTRAVE [Suspect]
     Active Substance: BUPROPION HYDROCHLORIDE\NALTREXONE HYDROCHLORIDE
     Indication: Weight control
     Dosage: UNK (5 DOSE IN TOTAL)
     Route: 065

REACTIONS (5)
  - Unevaluable event [Unknown]
  - Pruritus [Unknown]
  - Dizziness [Unknown]
  - Constipation [Unknown]
  - Abdominal pain [Unknown]
